FAERS Safety Report 10246484 (Version 1)
Quarter: 2014Q2

REPORT INFORMATION
  Report Type: Spontaneous
  Country: US (occurrence: None)
  Receive Date: 20140617
  Receipt Date: 20140617
  Transmission Date: 20141212
  Serious: Yes (Hospitalization, Disabling)
  Sender: FDA-Public Use
  Company Number: None

PATIENT
  Age: 61 Year
  Sex: Male
  Weight: 82.56 kg

DRUGS (2)
  1. LEVAQUIN [Suspect]
     Indication: LOCALISED INFECTION
     Dosage: 1TAB ONCE DAILY TAKEN BY MOUTH
     Route: 048
     Dates: start: 20140604, end: 20140614
  2. LEVAQUIN [Suspect]
     Indication: BRONCHITIS
     Dosage: 1TAB ONCE DAILY TAKEN BY MOUTH
     Route: 048
     Dates: start: 20140604, end: 20140614

REACTIONS (7)
  - Hypoaesthesia [None]
  - Hypoaesthesia [None]
  - Peripheral swelling [None]
  - Peripheral swelling [None]
  - Dysuria [None]
  - Sepsis [None]
  - Abasia [None]
